FAERS Safety Report 23460291 (Version 1)
Quarter: 2024Q1

REPORT INFORMATION
  Report Type: Spontaneous
  Country: PL (occurrence: PL)
  Receive Date: 20240131
  Receipt Date: 20240131
  Transmission Date: 20240409
  Serious: Yes (Hospitalization, Other)
  Sender: FDA-Public Use
  Company Number: None

PATIENT
  Age: 15 Year
  Sex: Male
  Weight: 82 kg

DRUGS (19)
  1. DOXORUBICIN [Suspect]
     Active Substance: DOXORUBICIN
     Indication: Ewing^s sarcoma
     Dosage: 40 MG, EVERY 24 HOURS
     Route: 042
     Dates: start: 20190315, end: 20190316
  2. DOXORUBICIN [Suspect]
     Active Substance: DOXORUBICIN
     Indication: Chemotherapy
  3. IFOSFAMIDE [Suspect]
     Active Substance: IFOSFAMIDE
     Indication: Chemotherapy
     Dosage: 6000 MG, EVERY 24 HOURS
     Route: 042
     Dates: start: 20190315, end: 20190316
  4. IFOSFAMIDE [Suspect]
     Active Substance: IFOSFAMIDE
     Indication: Ewing^s sarcoma
  5. MESNA [Suspect]
     Active Substance: MESNA
     Indication: Ewing^s sarcoma
     Dosage: 2000 MG, EVERY 24 HOURS
     Route: 042
     Dates: start: 20190315, end: 20190316
  6. MESNA [Suspect]
     Active Substance: MESNA
     Indication: Chemotherapy
  7. VINCRISTINE [Concomitant]
     Active Substance: VINCRISTINE
     Indication: Chemotherapy
     Dosage: 2 MG, EVERY 24 HOURS
     Route: 042
     Dates: start: 20190315, end: 20190316
  8. VINCRISTINE [Concomitant]
     Active Substance: VINCRISTINE
     Indication: Ewing^s sarcoma
  9. Amlopin [Concomitant]
     Indication: Hypertension
     Dosage: 5 MG, EVERY 24 HOURS, THERAPY ONGOING
     Route: 048
     Dates: start: 20190101
  10. Amlopin [Concomitant]
     Indication: Obesity
  11. ONDANSETRON [Concomitant]
     Active Substance: ONDANSETRON
     Indication: Prophylaxis of nausea and vomiting
     Dosage: 24 MG, EVERY 24 HOURS
     Route: 042
     Dates: start: 20190315, end: 20190316
  12. METFORMIN HYDROCHLORIDE [Concomitant]
     Active Substance: METFORMIN HYDROCHLORIDE
     Indication: Metabolic syndrome
     Dosage: 1000 MG, EVERY 24 HOURS, THERAPY ONGOING
     Route: 048
     Dates: start: 20190101
  13. ALLOPURINOL [Concomitant]
     Active Substance: ALLOPURINOL
     Indication: Metabolic syndrome
     Dosage: 200 MG, EVERY 24 HOURS, THERAPY ONGOING
     Route: 048
     Dates: start: 20190101
  14. FUROSEMIDE [Concomitant]
     Active Substance: FUROSEMIDE
     Indication: Obesity
     Dosage: 20 MG, EVERY 24 HOURS, THERAPY ONGOING
     Route: 042
     Dates: start: 20190101
  15. FUROSEMIDE [Concomitant]
     Active Substance: FUROSEMIDE
     Indication: Hypertension
  16. VORICONAZOLE [Concomitant]
     Active Substance: VORICONAZOLE
     Indication: Aspergillus infection
     Dosage: 400 MG, EVERY 24 HOURS
     Route: 048
     Dates: start: 20190313, end: 20190320
  17. HYDROCORTISONE [Concomitant]
     Active Substance: HYDROCORTISONE
     Indication: Chemotherapy
     Dosage: 200 MG, EVERY 24 HOURST, THERAPY ONGOING
     Route: 042
     Dates: start: 20190315, end: 20190316
  18. ETOPOSIDE [Concomitant]
     Active Substance: ETOPOSIDE
     Indication: Ewing^s sarcoma
     Dosage: 300 MG, EVERY 24 HOURS
     Route: 042
     Dates: start: 20190315, end: 20190316
  19. ETOPOSIDE [Concomitant]
     Active Substance: ETOPOSIDE
     Indication: Chemotherapy

REACTIONS (2)
  - Loss of consciousness [Unknown]
  - Seizure [Unknown]

NARRATIVE: CASE EVENT DATE: 20190316
